FAERS Safety Report 18339095 (Version 1)
Quarter: 2020Q3

REPORT INFORMATION
  Report Type: Spontaneous
  Country: US (occurrence: US)
  Receive Date: 20200930
  Receipt Date: 20200930
  Transmission Date: 20201103
  Serious: Yes (Life-Threatening, Hospitalization, Other)
  Sender: FDA-Public Use
  Company Number: None

PATIENT
  Age: 74 Year
  Sex: Male

DRUGS (1)
  1. DALTEPARIN (DALTEPARIN NA 10,000UNIT/0.4ML SYRINGE) [Suspect]
     Active Substance: DALTEPARIN SODIUM
     Dosage: ?          OTHER STRENGTH:10,000UNIT/0.4ML;?
     Route: 058
     Dates: start: 20200511, end: 20200712

REACTIONS (5)
  - Ecchymosis [None]
  - Haemoglobin decreased [None]
  - Pseudomonas infection [None]
  - Haemorrhage [None]
  - Haematoma [None]

NARRATIVE: CASE EVENT DATE: 20200712
